FAERS Safety Report 9867219 (Version 2)
Quarter: 2014Q1

REPORT INFORMATION
  Report Type: Spontaneous
  Country: FR (occurrence: FR)
  Receive Date: 20140204
  Receipt Date: 20140207
  Transmission Date: 20141002
  Serious: Yes (Other)
  Sender: FDA-Public Use
  Company Number: FR-B.I. PHARMACEUTICALS,INC./RIDGEFIELD-2014-BI-04126FF

PATIENT
  Age: 80 Year
  Sex: Female

DRUGS (8)
  1. PRADAXA [Suspect]
     Indication: ATRIAL FIBRILLATION
     Dosage: 220 MG
     Dates: start: 20140121, end: 20140127
  2. LASILIX [Concomitant]
     Indication: PRODUCT USED FOR UNKNOWN INDICATION
     Dosage: 40 MG
  3. METFORMINE [Concomitant]
     Indication: DIABETES MELLITUS
     Dosage: 1700 MG
  4. LANTUS [Concomitant]
     Indication: DIABETES MELLITUS
     Route: 058
  5. IMOVANE 3.75MG [Concomitant]
     Indication: PRODUCT USED FOR UNKNOWN INDICATION
  6. ISOPTINE 120MG [Concomitant]
     Indication: TACHYARRHYTHMIA
     Dates: start: 20140124
  7. OXYGEN THERAPY [Concomitant]
     Indication: HYPOXIA
  8. PANTOPRAZOLE 40MG [Concomitant]
     Indication: PRODUCT USED FOR UNKNOWN INDICATION

REACTIONS (1)
  - Renal failure acute [Not Recovered/Not Resolved]
